FAERS Safety Report 11241991 (Version 1)
Quarter: 2015Q3

REPORT INFORMATION
  Report Type: Spontaneous
  Country: IT (occurrence: IT)
  Receive Date: 20150706
  Receipt Date: 20150706
  Transmission Date: 20151125
  Serious: Yes (Death, Other)
  Sender: FDA-Public Use
  Company Number: IT-CELGENE-ITA-2015066846

PATIENT
  Age: 68 Year
  Sex: Female

DRUGS (3)
  1. REVLIMID [Suspect]
     Active Substance: LENALIDOMIDE
     Indication: PLASMA CELL MYELOMA
     Route: 048
  2. DEXAMETHASONE. [Suspect]
     Active Substance: DEXAMETHASONE
     Indication: PLASMA CELL MYELOMA
     Route: 065
  3. DEXAMETHASONE. [Suspect]
     Active Substance: DEXAMETHASONE
     Route: 065

REACTIONS (10)
  - Gastrointestinal haemorrhage [Fatal]
  - Hypertension [Unknown]
  - Oedema [Unknown]
  - Blood creatinine increased [Unknown]
  - Thrombocytopenia [Unknown]
  - Activated partial thromboplastin time prolonged [Unknown]
  - Fibrin D dimer increased [Unknown]
  - International normalised ratio increased [Unknown]
  - Antithrombin III decreased [Unknown]
  - Shock [Fatal]
